FAERS Safety Report 9907960 (Version 1)
Quarter: 2014Q1

REPORT INFORMATION
  Report Type: Spontaneous
  Country: CA (occurrence: CA)
  Receive Date: 20140219
  Receipt Date: 20140219
  Transmission Date: 20141002
  Serious: Yes (Other)
  Sender: FDA-Public Use
  Company Number: CA-ROCHE-1350797

PATIENT
  Sex: Female

DRUGS (5)
  1. XOLAIR [Suspect]
     Indication: ASTHMA
     Route: 058
     Dates: start: 20120501
  2. SINGULAIR [Concomitant]
  3. ALVESCO [Concomitant]
  4. SPIRIVA [Concomitant]
  5. PULMICORT [Concomitant]

REACTIONS (2)
  - Fall [Unknown]
  - Wrist fracture [Unknown]
